FAERS Safety Report 7424830-7 (Version None)
Quarter: 2011Q2

REPORT INFORMATION
  Report Type: 
  Country: None (occurrence: None)
  Receive Date: 20110419
  Receipt Date: 20110406
  Transmission Date: 20111010
  Serious: Yes (Other)
  Sender: FDA-Public Use
  Company Number: SG-BAYER-2011-030420

PATIENT
  Age: 35 Year
  Sex: Male

DRUGS (2)
  1. BACTRIM [Suspect]
     Route: 048
  2. ASPIRIN [Suspect]

REACTIONS (1)
  - ANGIOEDEMA [None]
